FAERS Safety Report 24329549 (Version 3)
Quarter: 2024Q4

REPORT INFORMATION
  Report Type: Report from Study
  Country: AE (occurrence: AE)
  Receive Date: 20240917
  Receipt Date: 20241007
  Transmission Date: 20250115
  Serious: No
  Sender: NOVARTIS
  Company Number: AE-002147023-NVSC2024AE176278

PATIENT
  Age: 28 Year
  Sex: Male

DRUGS (1)
  1. KESIMPTA [Suspect]
     Active Substance: OFATUMUMAB
     Indication: Multiple sclerosis
     Dosage: 20 MG, QMO (START DOSE 20 MG Q7 DAYS FOR THE FIRST MONTH FOLLOWED BY MONTHLY DOSE, 20 MG)
     Route: 058
     Dates: start: 20220807

REACTIONS (10)
  - Bilirubin conjugated increased [Recovered/Resolved]
  - Blood chloride increased [Recovered/Resolved]
  - Proteinuria [Recovered/Resolved]
  - Urobilinogen faeces abnormal [Recovered/Resolved]
  - Vitamin D decreased [Unknown]
  - C-reactive protein increased [Recovered/Resolved]
  - Thyroxine free decreased [Unknown]
  - White blood cell count decreased [Recovered/Resolved]
  - Red blood cell count decreased [Unknown]
  - Neutrophil count decreased [Recovered/Resolved]

NARRATIVE: CASE EVENT DATE: 20220807
